FAERS Safety Report 6755285-3 (Version None)
Quarter: 2010Q2

REPORT INFORMATION
  Report Type: 
  Country: None (occurrence: None)
  Receive Date: 20100602
  Receipt Date: 20100520
  Transmission Date: 20101027
  Serious: Yes (Hospitalization)
  Sender: FDA-Public Use
  Company Number: 2010EN000166

PATIENT
  Age: 73 Year
  Sex: Male
  Weight: 90 kg

DRUGS (16)
  1. ABELCET [Suspect]
     Indication: PROPHYLAXIS
     Dosage: 450 MG;BID;IV
     Route: 042
     Dates: start: 20100519, end: 20100519
  2. PROPOFOL [Concomitant]
  3. NULYTELY [Concomitant]
  4. METOCLOPRAMIDE [Concomitant]
  5. LINEZOLID [Concomitant]
  6. NORADRENALINE [Concomitant]
  7. FENTANYL [Concomitant]
  8. INSULIN [Concomitant]
  9. OMEPRAZOLE [Concomitant]
  10. SALBUTAMOL [Concomitant]
  11. ATROVENT [Concomitant]
  12. HYDROCORTISONE [Concomitant]
  13. MEROPENEM [Concomitant]
  14. CIPROFLOXACIN [Concomitant]
  15. CLONIDINE [Concomitant]
  16. PIRITON [Concomitant]

REACTIONS (4)
  - BLOOD PRESSURE INCREASED [None]
  - CHILLS [None]
  - HEART RATE INCREASED [None]
  - OXYGEN SATURATION DECREASED [None]
